FAERS Safety Report 6399480-4 (Version None)
Quarter: 2009Q4

REPORT INFORMATION
  Report Type: 
  Country: None (occurrence: None)
  Receive Date: 20091008
  Receipt Date: 20091008
  Transmission Date: 20100525
  Serious: Yes (Hospitalization)
  Sender: FDA-Public Use
  Company Number: None

PATIENT
  Age: 52 Year
  Sex: Male
  Weight: 73.9 kg

DRUGS (3)
  1. FLUOROURACIL [Suspect]
     Dosage: 1140 MG/M2
     Dates: start: 20090927, end: 20091001
  2. HYDREA [Suspect]
     Dosage: 500 MG PO BID
     Route: 048
     Dates: start: 20090927, end: 20091002
  3. CETUXIMAB 250 MG/M2 [Suspect]
     Dosage: 475 MG X M2
     Dates: start: 20090927, end: 20091001

REACTIONS (2)
  - PYREXIA [None]
  - SKIN DISORDER [None]
